FAERS Safety Report 9103709 (Version 2)
Quarter: 2013Q4

REPORT INFORMATION
  Report Type: Spontaneous
  Country: US (occurrence: US)
  Receive Date: 20130219
  Receipt Date: 20131021
  Transmission Date: 20140711
  Serious: Yes (Hospitalization, Other)
  Sender: FDA-Public Use
  Company Number: US-PFIZER INC-2013058984

PATIENT
  Age: 35 Year
  Sex: Female

DRUGS (15)
  1. SOLU-MEDROL [Suspect]
     Indication: MYASTHENIA GRAVIS CRISIS
     Dosage: 30 MG, SINGLE
     Route: 042
  2. SOLU-MEDROL [Suspect]
     Dosage: 250 MG, 4X/DAY
     Route: 042
  3. PREDNISONE [Concomitant]
     Dosage: 40 MG, ALTERNATE DAY (EVERY OTHER MORNING)
     Route: 048
  4. PYRIDOSTIGMINE [Concomitant]
     Dosage: 180 MG, 1X/DAY AT BEDTIME
     Route: 048
  5. PYRIDOSTIGMINE [Concomitant]
     Dosage: 120 MG, 3X/DAY
     Route: 048
  6. MYCOPHENOLATE MOFETIL [Concomitant]
     Indication: MYASTHENIA GRAVIS CRISIS
     Dosage: 500 MG, 2X/DAY
     Route: 048
  7. MYCOPHENOLATE MOFETIL [Concomitant]
     Dosage: 1000 MG, 2X/DAY
     Route: 048
  8. LEVONORGESTREL W/ETHINYLESTRADIOL [Concomitant]
     Dosage: 0.15 MG/0.03 MG DAILY
  9. OMEPRAZOLE [Concomitant]
     Dosage: 20 MG, DAILY
  10. PYRIDOSTIGMINE BROMIDE [Concomitant]
     Indication: MYASTHENIA GRAVIS CRISIS
     Dosage: 2MG EVERY 3 HOURS
     Route: 042
  11. PROPOFOL [Concomitant]
     Indication: SEDATION
     Dosage: UNK
  12. FENTANYL [Concomitant]
     Indication: ANALGESIC THERAPY
     Dosage: UNK
  13. HEPARIN [Concomitant]
     Dosage: 5000 UNITS EVERY 8 HOURS
     Route: 058
  14. FAMOTIDINE [Concomitant]
     Dosage: 20 MG, 2X/DAY
     Route: 042
  15. ALBUTEROL [Concomitant]
     Dosage: 2.5 MG, EVERY 4 HOURS AS NEEDED
     Route: 055

REACTIONS (1)
  - Macroglossia [Recovered/Resolved]
